FAERS Safety Report 21833621 (Version 2)
Quarter: 2023Q1

REPORT INFORMATION
  Report Type: Spontaneous
  Country: FR (occurrence: FR)
  Receive Date: 20230107
  Receipt Date: 20230123
  Transmission Date: 20230417
  Serious: Yes (Hospitalization, Other)
  Sender: FDA-Public Use
  Company Number: FR-Accord-295158

PATIENT
  Age: 10 Year
  Sex: Male
  Weight: 35 kg

DRUGS (1)
  1. TOPIRAMATE [Suspect]
     Active Substance: TOPIRAMATE
     Dosage: VOLUNTARILY INGESTED 700 MG TOPIRAMATE AS 20 MG/KG BODY WEIGHT

REACTIONS (13)
  - Toxicity to various agents [Unknown]
  - Somnolence [Recovered/Resolved]
  - Agitation [Recovered/Resolved]
  - Hallucination, visual [Recovered/Resolved]
  - Confusional state [Not Recovered/Not Resolved]
  - Toxic encephalopathy [Recovered/Resolved]
  - Hypotonia [Recovered/Resolved]
  - Logorrhoea [Recovered/Resolved]
  - Overdose [Unknown]
  - Prescription drug used without a prescription [Unknown]
  - Metabolic acidosis [Recovered/Resolved]
  - Hyperchloraemia [Recovered/Resolved]
  - Blood sodium increased [Recovered/Resolved]
